FAERS Safety Report 5551771-2 (Version None)
Quarter: 2007Q4

REPORT INFORMATION
  Report Type: 
  Country: None (occurrence: None)
  Receive Date: 20071129
  Receipt Date: 20070507
  Transmission Date: 20080405
  Serious: Yes (Hospitalization)
  Sender: FDA-Public Use
  Company Number: US200610001399

PATIENT
  Age: 44 Year
  Sex: Male
  Weight: 122.4 kg

DRUGS (12)
  1. ZYPREXA [Suspect]
     Indication: SCHIZOPHRENIA
     Dosage: 20 MG; 30 MG
     Dates: end: 19970101
  2. ZYPREXA [Suspect]
     Indication: SCHIZOPHRENIA
     Dosage: 20 MG; 30 MG
     Dates: end: 20050101
  3. ZYPREXA [Suspect]
     Indication: SCHIZOPHRENIA
     Dosage: 20 MG; 30 MG
     Dates: start: 19960101
  4. ZYPREXA [Suspect]
     Indication: SCHIZOPHRENIA
     Dosage: 20 MG; 30 MG
     Dates: start: 19980101
  5. ABILIFY [Concomitant]
  6. CLOZAPINE [Concomitant]
  7. QUETIAPINE FUMARATE [Concomitant]
  8. RISPERIDONE [Concomitant]
  9. GEODON [Concomitant]
  10. PERPHENAZINE [Concomitant]
  11. BUPROPION HCL [Concomitant]
  12. NEFAZODONE HCL [Concomitant]

REACTIONS (4)
  - CHEST PAIN [None]
  - OVERDOSE [None]
  - TYPE 2 DIABETES MELLITUS [None]
  - VISUAL DISTURBANCE [None]
